FAERS Safety Report 9244593 (Version 1)
Quarter: 2013Q2

REPORT INFORMATION
  Report Type: Report from Study
  Country: US (occurrence: US)
  Receive Date: 20130422
  Receipt Date: 20130422
  Transmission Date: 20140414
  Serious: Yes (Death, Hospitalization)
  Sender: FDA-Public Use
  Company Number: US-JNJFOC-20130311246

PATIENT
  Sex: Female

DRUGS (4)
  1. REMICADE [Suspect]
     Indication: RHEUMATOID ARTHRITIS
     Route: 042
  2. REMICADE [Suspect]
     Indication: RHEUMATOID ARTHRITIS
     Route: 042
     Dates: start: 20100309, end: 20130123
  3. PREDNISONE [Concomitant]
     Route: 065
     Dates: start: 2012
  4. METHOTREXATE [Concomitant]
     Route: 065
     Dates: start: 2012

REACTIONS (2)
  - Death [Fatal]
  - Fall [Unknown]
